FAERS Safety Report 6989743-3 (Version None)
Quarter: 2010Q3

REPORT INFORMATION
  Report Type: 
  Country: None (occurrence: None)
  Receive Date: 20100916
  Receipt Date: 20100222
  Transmission Date: 20110219
  Serious: Yes (Other)
  Sender: FDA-Public Use
  Company Number: ES-PFIZER INC-2010022592

PATIENT
  Age: 60 Year
  Sex: Female

DRUGS (3)
  1. LYRICA [Suspect]
     Indication: PAIN IN EXTREMITY
     Dosage: 25 MG, 3X/DAY
     Route: 048
     Dates: start: 20091201
  2. EUTIROX [Concomitant]
     Indication: HYPOTHYROIDISM
  3. ENALAPRIL [Concomitant]
     Indication: HYPERTENSION

REACTIONS (2)
  - LIP SWELLING [None]
  - THERMAL BURN [None]
